APPROVED DRUG PRODUCT: CIMETIDINE HYDROCHLORIDE
Active Ingredient: CIMETIDINE HYDROCHLORIDE
Strength: EQ 300MG BASE/5ML
Dosage Form/Route: SOLUTION;ORAL
Application: A074859 | Product #001
Applicant: ANI PHARMACEUTICALS INC
Approved: Jul 9, 1998 | RLD: No | RS: No | Type: DISCN